FAERS Safety Report 6342733-6 (Version None)
Quarter: 2009Q3

REPORT INFORMATION
  Report Type: 
  Country: None (occurrence: None)
  Receive Date: 20090908
  Receipt Date: 20090903
  Transmission Date: 20100115
  Serious: Yes (Life-Threatening, Other)
  Sender: FDA-Public Use
  Company Number: US-JNJFOC-20090807378

PATIENT
  Sex: Male
  Weight: 77.11 kg

DRUGS (1)
  1. LEVAQUIN [Suspect]
     Indication: URINARY TRACT INFECTION
     Route: 048

REACTIONS (6)
  - CHILLS [None]
  - FAECAL INCONTINENCE [None]
  - RESPIRATORY DISTRESS [None]
  - TREMOR [None]
  - URINARY INCONTINENCE [None]
  - VOMITING [None]
